FAERS Safety Report 4805776-7 (Version None)
Quarter: 2005Q4

REPORT INFORMATION
  Report Type: 
  Country: None (occurrence: None)
  Receive Date: 20051018
  Receipt Date: 20051006
  Transmission Date: 20060501
  Serious: Yes (Hospitalization)
  Sender: FDA-Public Use
  Company Number: 218017

PATIENT
  Age: 54 Year
  Sex: Female

DRUGS (12)
  1. HERCEPTIN [Suspect]
     Indication: BREAST CANCER
     Dosage: SEE IMAGE
  2. HERCEPTIN [Suspect]
     Indication: BREAST CANCER
     Dosage: SEE IMAGE
     Dates: start: 20050819
  3. HERCEPTIN [Suspect]
     Indication: BREAST CANCER
     Dosage: SEE IMAGE
     Dates: start: 20050909
  4. RADIATION (RADIATION THERAPY) [Suspect]
     Indication: BREAST CANCER
     Dates: start: 20050825
  5. TAXOL [Concomitant]
  6. CARBOPLATIN [Concomitant]
  7. LEXAPRO [Concomitant]
  8. AMBIEN [Concomitant]
  9. FOSAMAX [Concomitant]
  10. MULTI-VITAMIN SUPPLEMENT (MULTIVITAMINS NOS) [Concomitant]
  11. CALCIUM (CALCIUM NOS) [Concomitant]
  12. IBUPROFEN [Concomitant]

REACTIONS (4)
  - EJECTION FRACTION DECREASED [None]
  - HEART RATE DECREASED [None]
  - MYOCARDITIS [None]
  - PERICARDITIS [None]
